FAERS Safety Report 10049742 (Version 1)
Quarter: 2014Q2

REPORT INFORMATION
  Report Type: Not Available
  Country: SE (occurrence: SE)
  Receive Date: 20140401
  Receipt Date: 20140401
  Transmission Date: 20141212
  Serious: Yes (Life-Threatening)
  Sender: FDA-Public Use
  Company Number: SE-ASTELLAS-2014EU002643

PATIENT
  Age: 82 Year
  Sex: Male

DRUGS (1)
  1. MYCAMINE [Suspect]
     Dosage: UNK
     Route: 065

REACTIONS (1)
  - Leukopenia [Not Recovered/Not Resolved]
